FAERS Safety Report 25380976 (Version 2)
Quarter: 2025Q3

REPORT INFORMATION
  Report Type: Spontaneous
  Country: JP (occurrence: JP)
  Receive Date: 20250530
  Receipt Date: 20250822
  Transmission Date: 20251020
  Serious: Yes (Other)
  Sender: BAYER HEALTHCARE PHARMACEUTICALS INC.
  Company Number: JP-BAYER-2025A072145

PATIENT
  Sex: Male

DRUGS (3)
  1. NUBEQA [Suspect]
     Active Substance: DAROLUTAMIDE
     Dates: start: 20241123
  2. NUBEQA [Suspect]
     Active Substance: DAROLUTAMIDE
     Dosage: DAILY DOSE 600 MG
  3. NUBEQA [Suspect]
     Active Substance: DAROLUTAMIDE
     Dosage: DAILY DOSE 900 MG

REACTIONS (1)
  - Cardiac failure [Recovered/Resolved]

NARRATIVE: CASE EVENT DATE: 20250301
